FAERS Safety Report 7535783-5 (Version None)
Quarter: 2011Q2

REPORT INFORMATION
  Report Type: 
  Country: None (occurrence: None)
  Receive Date: 20110609
  Receipt Date: 20110603
  Transmission Date: 20111010
  Serious: Yes (Other)
  Sender: FDA-Public Use
  Company Number: US-ABBOTT-11P-163-0728691-00

PATIENT
  Age: 54 Year
  Sex: Female

DRUGS (10)
  1. CLARITIN [Concomitant]
     Indication: HYPERSENSITIVITY
     Dosage: DAILY
  2. HUMIRA [Suspect]
     Indication: PSORIATIC ARTHROPATHY
     Dosage: INITIAL DOSE
     Dates: start: 20110514
  3. LEVOTHYROXINE SODIUM [Concomitant]
     Indication: HYPOTHYROIDISM
  4. BENICAR [Concomitant]
     Indication: HYPERTENSION
  5. VITAMIN TAB [Concomitant]
     Indication: PRODUCT USED FOR UNKNOWN INDICATION
     Dosage: DAILY
  6. SUPPLEMENTS [Concomitant]
     Indication: PRODUCT USED FOR UNKNOWN INDICATION
     Dosage: DAILY
  7. PRILOSEC [Concomitant]
     Indication: GASTRITIS
  8. PREDNISONE [Concomitant]
     Indication: PRODUCT USED FOR UNKNOWN INDICATION
  9. CELEBREX [Concomitant]
     Indication: ARTHRITIS
  10. ZETIA [Concomitant]
     Indication: BLOOD CHOLESTEROL INCREASED

REACTIONS (11)
  - INJECTION SITE ERYTHEMA [None]
  - INJECTION SITE WARMTH [None]
  - FEELING HOT [None]
  - SWELLING FACE [None]
  - INJECTION SITE PAIN [None]
  - FLUSHING [None]
  - INJECTION SITE PRURITUS [None]
  - INJECTION SITE PAPULE [None]
  - RASH GENERALISED [None]
  - PRURITUS [None]
  - INJECTION SITE REACTION [None]
